FAERS Safety Report 8436366 (Version 7)
Quarter: 2013Q1

REPORT INFORMATION
  Report Type: Report from Study
  Country: JP (occurrence: JP)
  Receive Date: 20120301
  Receipt Date: 20130107
  Transmission Date: 20140127
  Serious: Yes (Other)
  Sender: FDA-Public Use
  Company Number: JP-ABBOTT-12P-087-0909187-00

PATIENT
  Age: 62 Year
  Sex: Female
  Weight: 44.5 kg

DRUGS (8)
  1. HUMIRA [Suspect]
     Indication: CROHN^S DISEASE
     Route: 058
     Dates: start: 20111208, end: 20111208
  2. HUMIRA [Suspect]
     Dates: start: 20111222, end: 20111222
  3. HUMIRA [Suspect]
     Dates: start: 20120105, end: 20120319
  4. FAMOTIDINE [Concomitant]
     Indication: CROHN^S DISEASE
     Route: 048
     Dates: end: 20120309
  5. FAMOTIDINE [Concomitant]
     Indication: GASTRIC MUCOSAL LESION
  6. LOPERAMIDE HYDROCHLORIDE [Concomitant]
     Indication: CROHN^S DISEASE
     Route: 048
     Dates: end: 20120217
  7. LOPERAMIDE HYDROCHLORIDE [Concomitant]
     Dates: start: 20120218, end: 20120309
  8. POLYCARBOPHIL CALCIUM [Concomitant]
     Indication: CROHN^S DISEASE
     Route: 048
     Dates: start: 20120214, end: 20120309

REACTIONS (9)
  - Metabolic encephalopathy [Not Recovered/Not Resolved]
  - Decreased appetite [Unknown]
  - Speech disorder [Unknown]
  - Abnormal behaviour [Unknown]
  - Memory impairment [Unknown]
  - Disorientation [Unknown]
  - Malnutrition [Unknown]
  - Metabolic disorder [Unknown]
  - Delirium [Unknown]
